FAERS Safety Report 5176472-4 (Version None)
Quarter: 2006Q4

REPORT INFORMATION
  Report Type: 
  Country: None (occurrence: None)
  Receive Date: 20061215
  Receipt Date: 20060302
  Transmission Date: 20070319
  Serious: Yes (Hospitalization, Other)
  Sender: FDA-Public Use
  Company Number: PHBS2006FI03543

PATIENT
  Age: 1 Day
  Sex: Male
  Weight: 3.135 kg

DRUGS (4)
  1. ALBETOL [Concomitant]
     Dosage: MATERNAL DOSE: 300 TO 900 MG/DAY
     Route: 064
     Dates: start: 20060226
  2. OXEPAM [Concomitant]
     Dosage: MATERNAL DOSE: 1 DF/DAY
     Route: 064
     Dates: start: 20060226
  3. TRILEPTAL [Suspect]
  4. TRILEPTAL [Suspect]
     Dosage: MATERNAL DOSE: 150MG TO 600 MG
     Route: 064
     Dates: start: 20060218

REACTIONS (7)
  - CONTINUOUS POSITIVE AIRWAY PRESSURE [None]
  - DRUG EXPOSURE DURING PREGNANCY [None]
  - DRUG EXPOSURE VIA BREAST MILK [None]
  - HYPOTONIA NEONATAL [None]
  - NEONATAL ASPIRATION [None]
  - NEONATAL INFECTION [None]
  - SOMNOLENCE NEONATAL [None]
